FAERS Safety Report 6714845-6 (Version None)
Quarter: 2010Q2

REPORT INFORMATION
  Report Type: 
  Country: None (occurrence: None)
  Receive Date: 20100507
  Receipt Date: 20100429
  Transmission Date: 20101027
  Serious: Yes (Other)
  Sender: FDA-Public Use
  Company Number: US-CEPHALON-2010002515

PATIENT
  Sex: Female

DRUGS (1)
  1. NUVIGIL [Suspect]
     Route: 048

REACTIONS (5)
  - APHASIA [None]
  - DYSPNOEA [None]
  - LARYNGEAL OEDEMA [None]
  - PRURITUS [None]
  - URTICARIA [None]
